FAERS Safety Report 23880825 (Version 1)
Quarter: 2024Q2

REPORT INFORMATION
  Report Type: Spontaneous
  Country: US (occurrence: None)
  Receive Date: 20240520
  Receipt Date: 20240520
  Transmission Date: 20240716
  Serious: No
  Sender: FDA-Public Use
  Company Number: None

PATIENT
  Age: 71 Year
  Sex: Male
  Weight: 86.18 kg

DRUGS (1)
  1. PROPOFOL [Suspect]
     Active Substance: PROPOFOL

REACTIONS (3)
  - Rhinorrhoea [None]
  - Nasal discomfort [None]
  - Sinus pain [None]

NARRATIVE: CASE EVENT DATE: 20240516
